FAERS Safety Report 6727717-8 (Version None)
Quarter: 2010Q2

REPORT INFORMATION
  Report Type: 
  Country: None (occurrence: None)
  Receive Date: 20100514
  Receipt Date: 20100514
  Transmission Date: 20101027
  Serious: Yes (Disabling)
  Sender: FDA-Public Use
  Company Number: None

PATIENT
  Age: 47 Year
  Sex: Female
  Weight: 59.4212 kg

DRUGS (1)
  1. LOESTRIN 24 FE [Suspect]
     Indication: MENORRHAGIA
     Dosage: 1 TAB DAILY
     Dates: start: 20100404, end: 20100420

REACTIONS (3)
  - HYPOAESTHESIA [None]
  - PARAESTHESIA [None]
  - PRODUCT QUALITY ISSUE [None]
